FAERS Safety Report 9768036 (Version 1)
Quarter: 2013Q4

REPORT INFORMATION
  Report Type: Spontaneous
  Country: CL (occurrence: CL)
  Receive Date: 20131217
  Receipt Date: 20131217
  Transmission Date: 20140711
  Serious: Yes (Other)
  Sender: FDA-Public Use
  Company Number: CL-PFIZER INC-2013357038

PATIENT
  Age: 70 Year
  Sex: Female

DRUGS (1)
  1. XALATAN [Suspect]
     Indication: GLAUCOMA
     Dosage: 1 DROP PER EYE IN THE MORNING
     Route: 047
     Dates: end: 2011

REACTIONS (2)
  - Cataract [Unknown]
  - Gallbladder disorder [Unknown]
